FAERS Safety Report 11578616 (Version 4)
Quarter: 2015Q4

REPORT INFORMATION
  Report Type: Spontaneous
  Country: US (occurrence: US)
  Receive Date: 20150930
  Receipt Date: 20151117
  Transmission Date: 20160304
  Serious: Yes (Other)
  Sender: FDA-Public Use
  Company Number: US-PFIZER INC-2015320838

PATIENT
  Age: 11 Year
  Sex: Female

DRUGS (11)
  1. TYVASO [Concomitant]
     Active Substance: TREPROSTINIL
     Dosage: UNK
  2. AMBRISENTAN [Suspect]
     Active Substance: AMBRISENTAN
     Indication: PULMONARY ARTERIAL HYPERTENSION
     Dosage: 10 MG, 1X/DAY
     Dates: start: 20140623
  3. AMBRISENTAN [Suspect]
     Active Substance: AMBRISENTAN
     Indication: PULMONARY HYPOPLASIA
     Dosage: 10 MG, 1X/DAY
  4. LETAIRIS [Concomitant]
     Active Substance: AMBRISENTAN
     Indication: CONGENITAL DIAPHRAGMATIC HERNIA
  5. TREPROSTINIL [Concomitant]
     Active Substance: TREPROSTINIL
     Dosage: UNK
     Route: 048
  6. ORENITRAM [Suspect]
     Active Substance: TREPROSTINIL
     Dosage: UNK
     Route: 048
  7. ADCIRCA [Concomitant]
     Active Substance: TADALAFIL
     Dosage: UNK
  8. ZYVOX [Suspect]
     Active Substance: LINEZOLID
     Dosage: 450 MG, 2X/DAY
     Dates: end: 20150911
  9. LETAIRIS [Concomitant]
     Active Substance: AMBRISENTAN
     Indication: PULMONARY HYPERTENSION
     Dosage: 10 MG, 1X/DAY
     Dates: start: 20140623
  10. AMBRISENTAN [Suspect]
     Active Substance: AMBRISENTAN
     Indication: CONGENITAL DIAPHRAGMATIC HERNIA
     Dosage: 10 MG, 1X/DAY
  11. LETAIRIS [Concomitant]
     Active Substance: AMBRISENTAN
     Indication: PULMONARY HYPOPLASIA

REACTIONS (7)
  - Echocardiogram abnormal [Unknown]
  - Dyspnoea at rest [Unknown]
  - Headache [Recovering/Resolving]
  - Off label use [Unknown]
  - Ear infection staphylococcal [Unknown]
  - Migraine [Recovering/Resolving]
  - Vomiting [Recovered/Resolved]
